FAERS Safety Report 22353488 (Version 2)
Quarter: 2023Q2

REPORT INFORMATION
  Report Type: Spontaneous
  Country: FR (occurrence: FR)
  Receive Date: 20230523
  Receipt Date: 20230530
  Transmission Date: 20230721
  Serious: Yes (Hospitalization)
  Sender: FDA-Public Use
  Company Number: None

PATIENT
  Age: 27 Year
  Sex: Female
  Weight: 49 kg

DRUGS (4)
  1. CETROTIDE [Suspect]
     Active Substance: CETRORELIX ACETATE
     Indication: Controlled ovarian stimulation
     Dosage: POWDER AND SOLVENT FOR SOLUTION FOR INJECTION
     Route: 058
     Dates: end: 202303
  2. CHORIOGONADOTROPIN ALFA [Suspect]
     Active Substance: CHORIOGONADOTROPIN ALFA
     Indication: Controlled ovarian stimulation
     Dosage: POWDER AND SOLVENT FOR SOLUTION FOR INJECTION
     Route: 058
     Dates: end: 202303
  3. DECAPEPTYL (ACETATE) [Suspect]
     Active Substance: TRIPTORELIN ACETATE
     Indication: Controlled ovarian stimulation
     Route: 030
     Dates: end: 202303
  4. FOLLITROPIN\LUTEINIZING HORMONE [Suspect]
     Active Substance: FOLLITROPIN\LUTEINIZING HORMONE
     Indication: Controlled ovarian stimulation
     Dosage: POWDER AND SOLVENT FOR SOLUTION FOR INJECTION
     Route: 030
     Dates: end: 202303

REACTIONS (2)
  - Oesophageal stenosis [Not Recovered/Not Resolved]
  - Ovarian hyperstimulation syndrome [Recovered/Resolved]

NARRATIVE: CASE EVENT DATE: 20230325
